FAERS Safety Report 8953051 (Version 2)
Quarter: 2012Q4

REPORT INFORMATION
  Report Type: 
  Country: SE (occurrence: SE)
  Receive Date: 20121205
  Receipt Date: 20121214
  Transmission Date: 20130627
  Serious: Yes (Other)
  Sender: FDA-Public Use
  Company Number: SE-BAYER-2012-116344

PATIENT
  Age: 75 Year
  Sex: Male

DRUGS (4)
  1. XARELTO [Suspect]
     Indication: THROMBOSIS PROPHYLAXIS
     Dosage: 10 mg, QD
     Route: 048
     Dates: start: 20121016, end: 20121030
  2. XARELTO [Suspect]
     Indication: KNEE PROSTHESIS INSERTION
  3. NAPROXEN [Interacting]
     Indication: POSTOPERATIVE PAIN
  4. SYMBICORT [Concomitant]
     Indication: ASTHMA

REACTIONS (3)
  - Haematoma [Recovered/Resolved]
  - Wound haemorrhage [Recovered/Resolved]
  - Procedural site reaction [None]
